FAERS Safety Report 8299811-4 (Version None)
Quarter: 2012Q2

REPORT INFORMATION
  Report Type: 
  Country: None (occurrence: None)
  Receive Date: 20120419
  Receipt Date: 20120419
  Transmission Date: 20120825
  Serious: Yes (Other)
  Sender: FDA-Public Use
  Company Number: None

PATIENT
  Sex: Female
  Weight: 49.4 kg

DRUGS (1)
  1. IOHEXOL 350 [Suspect]
     Dosage: 75ML

REACTIONS (2)
  - CHEST PAIN [None]
  - COUGH [None]
